FAERS Safety Report 7981572-7 (Version None)
Quarter: 2011Q4

REPORT INFORMATION
  Report Type: 
  Country: None (occurrence: None)
  Receive Date: 20111215
  Receipt Date: 20111208
  Transmission Date: 20120403
  Serious: Yes (Other)
  Sender: FDA-Public Use
  Company Number: GB-UCBSA-047419

PATIENT

DRUGS (1)
  1. CIMZIA [Suspect]
     Route: 058

REACTIONS (1)
  - ARTHRITIS BACTERIAL [None]
